FAERS Safety Report 16302525 (Version 2)
Quarter: 2019Q4

REPORT INFORMATION
  Report Type: Spontaneous
  Country: US (occurrence: US)
  Receive Date: 20190513
  Receipt Date: 20191024
  Transmission Date: 20200122
  Serious: Yes (Other)
  Sender: FDA-Public Use
  Company Number: US-SA-2019SA123886

PATIENT
  Age: 58 Year
  Sex: Female
  Weight: 82 kg

DRUGS (12)
  1. GABAPENTIN. [Concomitant]
     Active Substance: GABAPENTIN
     Dosage: UNK UNK, UNK
     Route: 065
     Dates: start: 2016
  2. TAXOTERE [Suspect]
     Active Substance: DOCETAXEL
     Indication: INVASIVE LOBULAR BREAST CARCINOMA
     Dosage: 190 MG, QW
     Route: 042
     Dates: start: 20170501, end: 20170501
  3. NEOSAR [Concomitant]
     Active Substance: CYCLOPHOSPHAMIDE
     Indication: BREAST CANCER FEMALE
     Dosage: UNK UNK, UNK
     Route: 065
  4. TAXOTERE [Suspect]
     Active Substance: DOCETAXEL
     Indication: LUNG CARCINOMA CELL TYPE UNSPECIFIED STAGE IV
     Dosage: 190 MG, QW
     Route: 042
     Dates: start: 20170207, end: 20170207
  5. WARFARIN [Concomitant]
     Active Substance: WARFARIN
     Dosage: UNK UNK, UNK
     Route: 065
     Dates: start: 2016
  6. NEUPOGEN [Concomitant]
     Active Substance: FILGRASTIM
     Dosage: UNK UNK, UNK
     Route: 065
     Dates: start: 2017
  7. OXYCODONE [Concomitant]
     Active Substance: OXYCODONE
     Dosage: UNK UNK, UNK
     Route: 065
     Dates: start: 2017
  8. MORPHINE SULFATE. [Concomitant]
     Active Substance: MORPHINE SULFATE
     Dosage: UNK UNK, UNK
     Route: 065
     Dates: start: 2017
  9. ADRIAMYCIN [Concomitant]
     Active Substance: DOXORUBICIN HYDROCHLORIDE
     Indication: BREAST CANCER
     Dosage: UNK UNK, UNK
     Route: 065
  10. GEMZAR [Concomitant]
     Active Substance: GEMCITABINE HYDROCHLORIDE
     Indication: LUNG CARCINOMA CELL TYPE UNSPECIFIED STAGE IV
     Route: 065
  11. AMLODIPINE BESYLATE. [Concomitant]
     Active Substance: AMLODIPINE BESYLATE
     Dosage: UNK UNK, UNK
     Route: 065
     Dates: start: 2004
  12. TAXOL [Concomitant]
     Active Substance: PACLITAXEL
     Indication: BREAST CANCER
     Dosage: UNK UNK, UNK
     Route: 065

REACTIONS (2)
  - Alopecia [Not Recovered/Not Resolved]
  - Psychological trauma [Unknown]

NARRATIVE: CASE EVENT DATE: 201703
